FAERS Safety Report 5441689-8 (Version None)
Quarter: 2007Q3

REPORT INFORMATION
  Report Type: 
  Country: None (occurrence: None)
  Receive Date: 20070829
  Receipt Date: 20070815
  Transmission Date: 20080115
  Serious: Yes (Other)
  Sender: FDA-Public Use
  Company Number: 100#08#2007-03107

PATIENT
  Age: 43 Year
  Sex: Female

DRUGS (9)
  1. CITALOPRAM HYDROBROMIDE [Suspect]
     Indication: DRUG USE FOR UNKNOWN INDICATION
     Dosage: 25 MG ONCE A DAY
  2. TOPIRAMATE (TOPIRAMATE) (TOPIRAMATE) [Concomitant]
  3. GABAPENTIN (GABAPENTIN) (GABAPENTIN) [Concomitant]
  4. CLONAZEPAM [Concomitant]
  5. TRAMADOL HCL [Concomitant]
  6. CLORAZEPATE (CLORAZEPATE DIPOTASSIUM) (CLORAZEPATE) [Concomitant]
  7. ZOPICLONE (ZOPICLONE) (COPICLONE) [Concomitant]
  8. OLANZAPINE (OLANZAPINE) (OLANZAPINE) [Concomitant]
  9. LORMETAZEPAM (LORMETAZEPAM) (LORMETAZEPAM) [Concomitant]

REACTIONS (1)
  - RAYNAUD'S PHENOMENON [None]
